FAERS Safety Report 4314362-7 (Version None)
Quarter: 2004Q1

REPORT INFORMATION
  Report Type: 
  Country: None (occurrence: None)
  Receive Date: 20040308
  Receipt Date: 20040223
  Transmission Date: 20041129
  Serious: Yes (Hospitalization, Other)
  Sender: FDA-Public Use
  Company Number: 2004007974

PATIENT
  Age: 68 Year
  Sex: Female

DRUGS (2)
  1. VFEND [Suspect]
     Indication: FUNGAL INFECTION
     Dosage: 450 MG (DAILY), INTRAVENOUS
     Route: 042
     Dates: start: 20040118, end: 20040119
  2. GLIPIZIDE [Suspect]
     Indication: DIABETES MELLITUS
     Dosage: 5 MG (DAILY), ORAL
     Route: 048
     Dates: start: 20020101, end: 20040101

REACTIONS (4)
  - COMA [None]
  - DRUG INTERACTION [None]
  - HYPOGLYCAEMIA [None]
  - UNEVALUABLE EVENT [None]
